FAERS Safety Report 23566959 (Version 1)
Quarter: 2024Q1

REPORT INFORMATION
  Report Type: Spontaneous
  Country: US (occurrence: US)
  Receive Date: 20240226
  Receipt Date: 20240226
  Transmission Date: 20240410
  Serious: No
  Sender: FDA-Public Use
  Company Number: US-AMNEAL PHARMACEUTICALS-2023-AMRX-03697

PATIENT
  Sex: Female
  Weight: 86.168 kg

DRUGS (3)
  1. RYTARY [Suspect]
     Active Substance: CARBIDOPA\LEVODOPA
     Indication: Product used for unknown indication
     Dosage: 2 CAPSULES (36.25/145 MG), 5 /DAY
     Route: 048
  2. RYTARY [Suspect]
     Active Substance: CARBIDOPA\LEVODOPA
     Dosage: 2 CAPSULES (48.75/195 MG), 6 /DAY
     Route: 048
     Dates: start: 20240110
  3. RYTARY [Suspect]
     Active Substance: CARBIDOPA\LEVODOPA
     Dosage: 3 CAPSULES (48.75/195 MG), 6 /DAY
     Route: 048
     Dates: start: 20240111

REACTIONS (1)
  - COVID-19 [Recovered/Resolved]
